FAERS Safety Report 25374894 (Version 2)
Quarter: 2025Q2

REPORT INFORMATION
  Report Type: Report from Study
  Country: CA (occurrence: CA)
  Receive Date: 20250529
  Receipt Date: 20250609
  Transmission Date: 20250716
  Serious: Yes (Other)
  Sender: DR REDDYS
  Company Number: CA-DRL-USA-CAN/2025/05/007744

PATIENT
  Age: 77 Year
  Sex: Female

DRUGS (1)
  1. ZOLEDRONIC ACID [Suspect]
     Active Substance: ZOLEDRONIC ACID
     Indication: Osteoporosis
     Route: 042
     Dates: start: 20220628, end: 20240628

REACTIONS (1)
  - Hip fracture [Recovering/Resolving]

NARRATIVE: CASE EVENT DATE: 20250506
